FAERS Safety Report 18933629 (Version 1)
Quarter: 2021Q1

REPORT INFORMATION
  Report Type: Spontaneous
  Country: AU (occurrence: AU)
  Receive Date: 20210224
  Receipt Date: 20210224
  Transmission Date: 20210420
  Serious: Yes (Other)
  Sender: FDA-Public Use
  Company Number: AU-ROCHE-2772460

PATIENT
  Sex: Female

DRUGS (2)
  1. PANADEINE FORTE [Suspect]
     Active Substance: ACETAMINOPHEN\CODEINE PHOSPHATE
     Indication: PRODUCT USED FOR UNKNOWN INDICATION
     Route: 065
  2. DIAZEPAM. [Suspect]
     Active Substance: DIAZEPAM
     Indication: PRODUCT USED FOR UNKNOWN INDICATION
     Route: 065

REACTIONS (14)
  - Alcoholism [Unknown]
  - Suicide attempt [Unknown]
  - Loss of consciousness [Unknown]
  - Coma [Unknown]
  - Intentional overdose [Unknown]
  - White blood cell count decreased [Unknown]
  - Drug dependence [Unknown]
  - Post-traumatic stress disorder [Unknown]
  - Dysphonia [Unknown]
  - Delirium tremens [Unknown]
  - Alcohol poisoning [Unknown]
  - Illness [Unknown]
  - Memory impairment [Unknown]
  - Nervousness [Unknown]
